FAERS Safety Report 24529233 (Version 1)
Quarter: 2024Q4

REPORT INFORMATION
  Report Type: Spontaneous
  Country: US (occurrence: None)
  Receive Date: 20241018
  Receipt Date: 20241018
  Transmission Date: 20250115
  Serious: Yes (Hospitalization)
  Sender: Public
  Company Number: None

PATIENT
  Age: 35 Year
  Sex: Male
  Weight: 66.6 kg

DRUGS (1)
  1. HERBALS\TETRAHYDROCANNABINOL UNSPECIFIED [Suspect]
     Active Substance: HERBALS\TETRAHYDROCANNABINOL UNSPECIFIED
     Indication: Relaxation therapy
     Dosage: OTHER QUANTITY : 5 GUMMY;?
     Dates: start: 20240907, end: 20240907

REACTIONS (3)
  - Neuralgia [None]
  - Hallucination [None]
  - Derealisation [None]

NARRATIVE: CASE EVENT DATE: 20240907
